FAERS Safety Report 25548931 (Version 1)
Quarter: 2025Q3

REPORT INFORMATION
  Report Type: Report from Study
  Country: US (occurrence: US)
  Receive Date: 20250714
  Receipt Date: 20250714
  Transmission Date: 20251020
  Serious: Yes (Hospitalization)
  Sender: ROCHE
  Company Number: US-ROCHE-10000333496

PATIENT
  Age: 57 Year
  Sex: Female

DRUGS (6)
  1. OCREVUS [Suspect]
     Active Substance: OCRELIZUMAB
     Indication: Multiple sclerosis
     Dosage: 2 INITIAL DOSES 300MG 2 WEEKS APART, Q 6?MOTH 600MG AFTER THAT
     Route: 065
     Dates: start: 20200121
  2. OCREVUS [Suspect]
     Active Substance: OCRELIZUMAB
     Dosage: 2 INITIAL DOSES 300MG 2 WEEKS APART, Q 6?MOTH 600MG AFTER THAT
     Route: 065
     Dates: start: 20200707
  3. OCREVUS [Suspect]
     Active Substance: OCRELIZUMAB
     Dosage: 2 INITIAL DOSES 300MG 2 WEEKS APART, Q 6?MOTH 600MG AFTER THAT
     Route: 065
     Dates: start: 20210112
  4. OCREVUS [Suspect]
     Active Substance: OCRELIZUMAB
     Dosage: 2 INITIAL DOSES 300MG 2 WEEKS APART, Q 6?MOTH 600MG AFTER THAT
     Route: 065
     Dates: start: 20210713
  5. OCREVUS [Suspect]
     Active Substance: OCRELIZUMAB
     Dosage: 2 INITIAL DOSES 300MG 2 WEEKS APART, Q 6?MOTH 600MG AFTER THAT
     Route: 065
     Dates: start: 20220118
  6. OCREVUS [Suspect]
     Active Substance: OCRELIZUMAB
     Dosage: 2 INITIAL DOSES 300MG 2 WEEKS APART, Q 6?MOTH 600MG AFTER THAT
     Route: 065
     Dates: start: 20200107

REACTIONS (1)
  - Asthenia [Recovered/Resolved]

NARRATIVE: CASE EVENT DATE: 20200714
